FAERS Safety Report 8987632 (Version 3)
Quarter: 2013Q4

REPORT INFORMATION
  Report Type: Report from Study
  Country: FR (occurrence: FR)
  Receive Date: 20121227
  Receipt Date: 20131031
  Transmission Date: 20140711
  Serious: Yes (Hospitalization, Disabling)
  Sender: FDA-Public Use
  Company Number: FR-MPIJNJ-2012-07393

PATIENT
  Age: 72 Year
  Sex: Male
  Weight: 90 kg

DRUGS (14)
  1. VELCADE [Suspect]
     Indication: MANTLE CELL LYMPHOMA
     Dosage: 2.625 MG, UNK
     Route: 058
     Dates: start: 20121002, end: 20121105
  2. LEVACT [Suspect]
     Indication: MANTLE CELL LYMPHOMA
     Dosage: 125 MG, UNK
     Route: 042
     Dates: start: 20121002, end: 20121105
  3. MABTHERA [Suspect]
     Indication: MANTLE CELL LYMPHOMA
     Dosage: 750 MG, UNK
     Route: 042
     Dates: start: 20121002, end: 20121105
  4. DEXAMETHASONE [Suspect]
     Indication: MANTLE CELL LYMPHOMA
     Dosage: 40 MG, UNK
     Route: 042
     Dates: start: 20121003, end: 20121003
  5. TAHOR [Concomitant]
     Indication: HYPERCHOLESTEROLAEMIA
     Dosage: 10 MG, UNK
     Route: 048
  6. NITRENDIPINE [Concomitant]
     Indication: HYPERTENSION
     Dosage: 20 MG, UNK
     Route: 048
  7. ZELITREX                           /01269701/ [Concomitant]
     Indication: INFECTION PROPHYLAXIS
     Dosage: 021012 UNK, UNK
     Route: 048
     Dates: start: 20121002
  8. SYMBICORT [Concomitant]
     Indication: ASTHMA
     Route: 048
  9. ORACILLINE                         /00001801/ [Concomitant]
     Indication: INFECTION PROPHYLAXIS
     Dosage: UNK
     Route: 048
     Dates: start: 20121009, end: 20121014
  10. PERFALGAN [Concomitant]
     Indication: PRODUCT USED FOR UNKNOWN INDICATION
  11. FLAGYL                             /00012501/ [Concomitant]
     Indication: INFECTION PROPHYLAXIS
     Dosage: UNK
     Dates: start: 20121029
  12. ATARAX                             /00058401/ [Concomitant]
     Indication: PRODUCT USED FOR UNKNOWN INDICATION
     Dosage: 50 MG, UNK
     Dates: start: 20121029
  13. ATARAX                             /00058401/ [Concomitant]
     Dosage: 50 MG, UNK
     Dates: start: 20121105
  14. EZETIMIBE [Concomitant]
     Indication: HYPERCHOLESTEROLAEMIA
     Dosage: UNK
     Dates: start: 20121029, end: 20121104

REACTIONS (2)
  - Lung infection [Recovered/Resolved]
  - Hypersensitivity [Recovered/Resolved]
